FAERS Safety Report 9356869 (Version 2)
Quarter: 2013Q3

REPORT INFORMATION
  Report Type: Report from Study
  Country: FR (occurrence: FR)
  Receive Date: 20130620
  Receipt Date: 20130701
  Transmission Date: 20140515
  Serious: Yes (Hospitalization, Disabling)
  Sender: FDA-Public Use
  Company Number: FR-ROCHE-1239010

PATIENT
  Age: 35 Year
  Sex: Female
  Weight: 50 kg

DRUGS (3)
  1. ZELBORAF [Suspect]
     Indication: NEOPLASM MALIGNANT
     Route: 048
     Dates: start: 20130607
  2. ZELBORAF [Suspect]
     Dosage: 2 DF IN MORNING AND 2 DF IN EVENING
     Route: 048
     Dates: start: 20130621
  3. ZELBORAF [Suspect]
     Dosage: 3DF IN MORNING AND 3 DF IN EVENING
     Route: 048
     Dates: start: 20130628

REACTIONS (2)
  - Balance disorder [Recovered/Resolved]
  - Vertigo [Unknown]
